FAERS Safety Report 12457227 (Version 4)
Quarter: 2017Q1

REPORT INFORMATION
  Report Type: Spontaneous
  Country: US (occurrence: US)
  Receive Date: 20160610
  Receipt Date: 20170310
  Transmission Date: 20170428
  Serious: No
  Sender: FDA-Public Use
  Company Number: US-PFIZER INC-2016286131

PATIENT
  Age: 61 Year
  Sex: Female
  Weight: 80.74 kg

DRUGS (35)
  1. LYRICA [Suspect]
     Active Substance: PREGABALIN
     Indication: ARTHRITIS
     Dosage: 75 MG, 1X/DAY
     Route: 048
  2. NIFEDIPINE. [Concomitant]
     Active Substance: NIFEDIPINE
     Dosage: 30 MG, 2X/DAY [1 AT AM, 1 AT PM]
  3. PANTOPRAZOLE [Concomitant]
     Active Substance: PANTOPRAZOLE SODIUM
     Dosage: 40 MG, 2X/DAY [1 AT AM, 1 AT PM]
  4. PREMARIN [Concomitant]
     Active Substance: ESTROGENS, CONJUGATED
     Dosage: 0.625 MG, AS NEEDED
     Route: 067
  5. DOLOPHINE [Concomitant]
     Active Substance: METHADONE HYDROCHLORIDE
     Indication: PAIN
     Dosage: 10 MG, EVERY 4 HRS
     Route: 048
  6. NEURONTIN [Concomitant]
     Active Substance: GABAPENTIN
     Dosage: 500 MG, DAILY [TAKE 3 CAPSULES IN THE MORNING AND 2 CAPSULES IN THE EVENING]
     Route: 048
  7. PREDNISONE. [Concomitant]
     Active Substance: PREDNISONE
     Dosage: 5 MG, 1X/DAY [1 AT AM]
  8. PROGRAF [Concomitant]
     Active Substance: TACROLIMUS\TACROLIMUS ANHYDROUS
     Dosage: 2 MG, 2X/DAY (2 AT AM, 2 AT PM)
  9. NORTRIPTYLINE [Concomitant]
     Active Substance: NORTRIPTYLINE
     Dosage: 10 MG, 1X/DAY  [1 AT PM]
  10. CURCUMIN [Concomitant]
     Active Substance: CURCUMIN
     Dosage: 1000 MG, 1X/DAY [1 AT AM]
  11. PROTONIX [Concomitant]
     Active Substance: PANTOPRAZOLE SODIUM
     Dosage: 40 MG, UNK [TAKE 1 TABLET BY MOUTH DAILY 30 MINUTES BEFORE A MEAL TWICE PER DAY]
     Route: 048
  12. PROCARDIA [Concomitant]
     Active Substance: NIFEDIPINE
     Indication: HYPERTENSION
     Dosage: 30 MG, DAILY
     Route: 048
  13. TERCONAZOLE. [Concomitant]
     Active Substance: TERCONAZOLE
     Dosage: INSERT 1 APPLICATOR FULL VAGINALLY EVERY NIGHT AT BEDTIME FOR 3 NIGHTS]
     Route: 067
  14. VITAMIN D2 [Concomitant]
     Active Substance: ERGOCALCIFEROL
     Indication: BONE DISORDER
     Dosage: 5000 IU, UNK [1 EVERY OTHER WEEK]
  15. PROBIOTIC ACIDOPHILUS [Concomitant]
     Active Substance: LACTOBACILLUS ACIDOPHILUS
     Dosage: 1000 G, 1X/DAY [1 AT AM]
  16. DELTASONE [Concomitant]
     Active Substance: PREDNISONE
     Dosage: 5 MG, DAILY
     Route: 048
  17. LYRICA [Suspect]
     Active Substance: PREGABALIN
     Indication: FIBROMYALGIA
     Dosage: 75 MG, 2X/DAY
     Route: 048
  18. BUSPIRONE [Concomitant]
     Active Substance: BUSPIRONE HYDROCHLORIDE
     Dosage: 15 MG, 2X/DAY [1 AT AM, 1 AT PM]
  19. GABAPENTIN. [Concomitant]
     Active Substance: GABAPENTIN
     Dosage: 50 MG, DAILY [3 AT AM, 2 AT PM]
  20. IMITREX [Concomitant]
     Active Substance: SUMATRIPTAN SUCCINATE
     Indication: MIGRAINE
     Dosage: 50 MG, AS NEEDED [PRN]
  21. ZANTAC [Concomitant]
     Active Substance: RANITIDINE HYDROCHLORIDE
     Dosage: 150 MG, 2X/DAY
     Route: 048
  22. CELLCEPT [Concomitant]
     Active Substance: MYCOPHENOLATE MOFETIL\MYCOPHENOLATE MOFETIL HYDROCHLORIDE
     Indication: RENAL TRANSPLANT
     Dosage: 750 MG, DAILY [1 AT AM, 2 AT PM]
  23. GLUCOSAMINE/CONDROITIN [Concomitant]
     Dosage: 1 DF, 2X/DAY [GLUCOSAMINE: 1,500 MG]/[CHONDROITIN: 1700]
  24. AVENTYL [Concomitant]
     Indication: PAIN
     Dosage: 10 MG, 1X/DAY [DAILY AT BEDTIME]
     Route: 048
  25. ANECREAM [Concomitant]
     Active Substance: LIDOCAINE
     Dosage: APPLY TO AFFECTED AREA AS DIRECTED
     Route: 061
  26. CALCITRIOL. [Concomitant]
     Active Substance: CALCITRIOL
     Dosage: 0.5 UG (: 2 AT M, W, F. AND 1 AT SU, TU, TH, SA)
  27. PREMARIN [Concomitant]
     Active Substance: ESTROGENS, CONJUGATED
     Dosage: 1 G, 2X/WEEK
     Route: 067
  28. TEMAZEPAM. [Concomitant]
     Active Substance: TEMAZEPAM
     Dosage: 30 MG, 1X/DAY  [1 AT PM]
  29. VITAMIN D2 [Concomitant]
     Active Substance: ERGOCALCIFEROL
     Dosage: 50000 IU, UNK [TAKE ONE CAPSULE ORALLY EVERY 2 WEEKS]
     Route: 048
  30. OMEGA 3-6-9 [Concomitant]
     Active Substance: FISH OIL
     Dosage: 9000 MG, 1X/DAY  [3 AT AM]
  31. VITAMIN C [Concomitant]
     Active Substance: ASCORBIC ACID
     Dosage: 1000 MG, 1X/DAY [1 AT AM]
  32. RESTORIL [Concomitant]
     Active Substance: TEMAZEPAM
     Dosage: 30 MG, 1X/DAY [DAILY AT BEDTIME]
     Route: 048
  33. ROCALTROL [Concomitant]
     Active Substance: CALCITRIOL
     Dosage: 0.5 UG  [TAKE 2 CAPSULE ORALLY ON MONDAY, WEDNESDAY AND FRIDAY AND 1 CAPSULE ON ALL OTHER DAYS]
     Route: 048
  34. BUSPAR [Concomitant]
     Active Substance: BUSPIRONE HYDROCHLORIDE
     Dosage: 15 MG, 2X/DAY
     Route: 048
  35. PAMELOR [Concomitant]
     Active Substance: NORTRIPTYLINE HYDROCHLORIDE
     Indication: PAIN
     Dosage: 10 MG, 1X/DAY (TAKE CAPSULE BY MOUTH )
     Route: 048

REACTIONS (10)
  - Intentional product use issue [Unknown]
  - Condition aggravated [Not Recovered/Not Resolved]
  - Mobility decreased [Unknown]
  - Feeling abnormal [Unknown]
  - Stress [Unknown]
  - Foot deformity [Unknown]
  - Pain [Unknown]
  - Myalgia [Not Recovered/Not Resolved]
  - Memory impairment [Unknown]
  - Insomnia [Unknown]

NARRATIVE: CASE EVENT DATE: 20170206
